FAERS Safety Report 6395137-4 (Version None)
Quarter: 2009Q4

REPORT INFORMATION
  Report Type: 
  Country: None (occurrence: None)
  Receive Date: 20091009
  Receipt Date: 20090914
  Transmission Date: 20100525
  Serious: No
  Sender: FDA-Public Use
  Company Number: US-ROCHE-657234

PATIENT
  Age: 11 Month
  Sex: Male

DRUGS (1)
  1. TAMIFLU [Suspect]
     Dosage: INDICATION: PNEUMONIA. RECEIVED TWO TABLESPOON OF IN PLACE OF 2 ML. POWDER FOR SUSPENSION 12 MG/ML.
     Route: 048
     Dates: start: 20090910, end: 20090911

REACTIONS (2)
  - NO ADVERSE EVENT [None]
  - OVERDOSE [None]
